FAERS Safety Report 16895242 (Version 1)
Quarter: 2019Q4

REPORT INFORMATION
  Report Type: Spontaneous
  Country: US (occurrence: US)
  Receive Date: 20190814
  Receipt Date: 20190814
  Transmission Date: 20200122
  Serious: Yes (Death)
  Sender: FDA-Public Use
  Company Number: None

PATIENT
  Sex: Female

DRUGS (1)
  1. DOFETILIDE 250MCG [Suspect]
     Active Substance: DOFETILIDE
     Indication: OSTEOPOROSIS
     Dosage: ?          OTHER FREQUENCY:QAM;?
     Route: 048
     Dates: start: 20180225

REACTIONS (1)
  - Death [None]
